FAERS Safety Report 14571976 (Version 1)
Quarter: 2018Q1

REPORT INFORMATION
  Report Type: Report from Study
  Country: US (occurrence: US)
  Receive Date: 20180226
  Receipt Date: 20180226
  Transmission Date: 20180509
  Serious: Yes (Death, Life-Threatening, Hospitalization, Other)
  Sender: FDA-Public Use
  Company Number: US-BRISTOL-MYERS SQUIBB COMPANY-BMS-2018-000317

PATIENT
  Sex: Male
  Weight: 108.3 kg

DRUGS (4)
  1. APIXABAN [Concomitant]
     Active Substance: APIXABAN
     Indication: PRODUCT USED FOR UNKNOWN INDICATION
     Dosage: 2.5 MG, UNK
     Route: 065
  2. NIVOLUMAB [Suspect]
     Active Substance: NIVOLUMAB
     Indication: PANCREATIC CARCINOMA
     Dosage: 240 MG, Q2WK
     Route: 042
     Dates: start: 20170717
  3. IPILIMUMAB [Suspect]
     Active Substance: IPILIMUMAB
     Indication: PANCREATIC CARCINOMA
     Dosage: 105 MG, Q6WK
     Route: 042
     Dates: start: 20170717
  4. ACETAMINOPHEN. [Concomitant]
     Active Substance: ACETAMINOPHEN
     Indication: PRODUCT USED FOR UNKNOWN INDICATION
     Dosage: 650 MG, UNK
     Route: 065

REACTIONS (15)
  - Aspiration [Unknown]
  - Hyperglycaemia [Unknown]
  - Refeeding syndrome [Unknown]
  - Blood thyroid stimulating hormone increased [Unknown]
  - Blood bilirubin increased [Unknown]
  - Hypophosphataemia [Unknown]
  - Systemic inflammatory response syndrome [Unknown]
  - Adrenal insufficiency [Unknown]
  - Cardiac failure [Unknown]
  - Anaemia [Unknown]
  - Pneumonia [Unknown]
  - Hepatic encephalopathy [Unknown]
  - Pulmonary oedema [Unknown]
  - Post procedural haemorrhage [Unknown]
  - Malignant neoplasm progression [Fatal]
